FAERS Safety Report 8130047-3 (Version None)
Quarter: 2012Q1

REPORT INFORMATION
  Report Type: 
  Country: None (occurrence: None)
  Receive Date: 20120210
  Receipt Date: 20120131
  Transmission Date: 20120608
  Serious: Yes (Hospitalization, Other)
  Sender: FDA-Public Use
  Company Number: US-CELGENEUS-163-21880-11110176

PATIENT
  Sex: Male

DRUGS (19)
  1. GLYBURIDE [Concomitant]
     Dosage: 5 MILLIGRAM
     Route: 065
  2. LISINOPRIL [Concomitant]
     Dosage: 2.5 MILLIGRAM
     Route: 065
  3. REVLIMID [Suspect]
     Indication: MULTIPLE MYELOMA
     Dosage: 15 MILLIGRAM
     Route: 048
     Dates: start: 20110608
  4. REVLIMID [Suspect]
     Dosage: 10 MILLIGRAM
     Route: 048
  5. NEUPOGEN [Concomitant]
     Route: 065
  6. DEXAMETHASONE [Concomitant]
     Dosage: 20 MILLIGRAM
     Route: 065
  7. ASPIRIN [Concomitant]
     Dosage: 81 MILLIGRAM
     Route: 065
  8. CARDURA [Concomitant]
     Route: 065
  9. FINASTERIDE [Concomitant]
     Route: 065
  10. FERROUS SULFATE TAB [Concomitant]
     Dosage: 325 MILLIGRAM
     Route: 048
  11. LYRICA [Concomitant]
     Route: 065
  12. METFORMIN HCL [Concomitant]
     Route: 065
  13. ZITHROMAX [Concomitant]
     Route: 065
  14. HUMULIN R [Concomitant]
     Dosage: 20 UNITS
     Route: 065
  15. ALLOPURINOL [Concomitant]
     Route: 065
  16. PRAVASTATIN [Concomitant]
     Route: 065
  17. VITAMIN B-12 [Concomitant]
     Route: 065
  18. NITROGLYCERIN [Concomitant]
     Route: 065
  19. PRILOSEC [Concomitant]
     Route: 065

REACTIONS (2)
  - THROMBOPHLEBITIS SUPERFICIAL [None]
  - ATRIAL FLUTTER [None]
